FAERS Safety Report 10175198 (Version 1)
Quarter: 2014Q2

REPORT INFORMATION
  Report Type: Spontaneous
  Country: US (occurrence: US)
  Receive Date: 20140515
  Receipt Date: 20140515
  Transmission Date: 20141212
  Serious: No
  Sender: FDA-Public Use
  Company Number: US-VIVUS-2014V1000061

PATIENT
  Sex: Female
  Weight: 84.44 kg

DRUGS (7)
  1. QSYMIA 3.75MG/23MG [Suspect]
     Indication: WEIGHT DECREASED
     Route: 048
  2. QSYMIA 3.75MG/23MG [Suspect]
     Indication: BLOOD GLUCOSE ABNORMAL
  3. QSYMIA 3.75MG/23MG [Suspect]
     Indication: BLOOD CHOLESTEROL
  4. QSYMIA 7.5MG/46MG [Suspect]
     Indication: WEIGHT DECREASED
     Route: 048
  5. QSYMIA 7.5MG/46MG [Suspect]
     Indication: BLOOD GLUCOSE ABNORMAL
  6. QSYMIA 7.5MG/46MG [Suspect]
     Indication: BLOOD CHOLESTEROL
  7. MELATONIN [Concomitant]
     Indication: SLEEP DISORDER
     Route: 048

REACTIONS (6)
  - Agitation [Not Recovered/Not Resolved]
  - Dysgeusia [Not Recovered/Not Resolved]
  - Feeling jittery [Recovering/Resolving]
  - Insomnia [Recovering/Resolving]
  - Anxiety [Recovering/Resolving]
  - Neck pain [Not Recovered/Not Resolved]
